FAERS Safety Report 8030482-8 (Version None)
Quarter: 2012Q1

REPORT INFORMATION
  Report Type: 
  Country: None (occurrence: None)
  Receive Date: 20120105
  Receipt Date: 20111220
  Transmission Date: 20120608
  Serious: Yes (Other)
  Sender: FDA-Public Use
  Company Number: 2011BN000108

PATIENT
  Age: 37 Year
  Sex: Female

DRUGS (8)
  1. FLUDARABINE PHOSPHATE [Suspect]
     Indication: BONE MARROW CONDITIONING REGIMEN
     Dosage: 37.5 MG/M**2;QD
  2. DOXORUBICIN HCL [Concomitant]
  3. CYCLOSPORINE [Concomitant]
  4. PREDNISOLONE [Concomitant]
  5. MELPHALAN HYDROCHLORIDE [Suspect]
     Indication: BONE MARROW CONDITIONING REGIMEN
     Dosage: 60 MG/M**2;QD
  6. VINCRISTINE [Concomitant]
  7. PREDNISONE [Concomitant]
  8. CYCLOPHOSPHAMIDE [Concomitant]

REACTIONS (3)
  - NEUTROPENIA [None]
  - DISEASE RECURRENCE [None]
  - EPSTEIN-BARR VIRUS INFECTION [None]
